FAERS Safety Report 14239615 (Version 1)
Quarter: 2017Q4

REPORT INFORMATION
  Report Type: Spontaneous
  Country: US (occurrence: None)
  Receive Date: 20171130
  Receipt Date: 20171130
  Transmission Date: 20180321
  Serious: Yes (Hospitalization)
  Sender: FDA-Public Use
  Company Number: None

PATIENT
  Age: 60 Year
  Sex: Male
  Weight: 117 kg

DRUGS (2)
  1. TAXOL [Suspect]
     Active Substance: PACLITAXEL
     Dosage: THE UNIT IS MG/M2?
     Dates: end: 20171017
  2. CARBOPLATIN. [Suspect]
     Active Substance: CARBOPLATIN
     Dates: end: 20171017

REACTIONS (6)
  - Chronic obstructive pulmonary disease [None]
  - Enterovirus test positive [None]
  - Dyspnoea [None]
  - Human rhinovirus test positive [None]
  - Chest pain [None]
  - Cough [None]

NARRATIVE: CASE EVENT DATE: 20171106
